FAERS Safety Report 9614026 (Version 1)
Quarter: 2013Q4

REPORT INFORMATION
  Report Type: Spontaneous
  Country: US (occurrence: US)
  Receive Date: 20131011
  Receipt Date: 20131011
  Transmission Date: 20140711
  Serious: Yes (Hospitalization)
  Sender: FDA-Public Use
  Company Number: US-ROCHE-1284623

PATIENT
  Age: 39 Year
  Sex: Male

DRUGS (8)
  1. KETOROLAC [Suspect]
     Indication: PRODUCT USED FOR UNKNOWN INDICATION
     Route: 042
  2. PROPOFOL [Concomitant]
  3. SEVOFLURANE [Concomitant]
  4. MIDAZOLAM ROCHE UNSPEC. [Concomitant]
     Route: 065
  5. FENTANYL [Concomitant]
  6. ROCURONIUM [Concomitant]
  7. GLYCOPYRROLATE [Concomitant]
  8. MORPHINE [Concomitant]
     Route: 042

REACTIONS (1)
  - Pulmonary alveolar haemorrhage [Recovered/Resolved]
